FAERS Safety Report 6533240-6 (Version None)
Quarter: 2010Q1

REPORT INFORMATION
  Report Type: 
  Country: None (occurrence: None)
  Receive Date: 20100111
  Receipt Date: 20091222
  Transmission Date: 20100710
  Serious: No
  Sender: FDA-Public Use
  Company Number: US-JNJFOC-20091102331

PATIENT
  Sex: Male
  Weight: 106.14 kg

DRUGS (5)
  1. INVEGA SUSTENNA [Suspect]
     Indication: SCHIZOPHRENIA
     Route: 030
  2. ZYPREXA [Concomitant]
     Indication: PSYCHOTIC DISORDER
  3. LITHIUM CARBONATE [Concomitant]
     Indication: AFFECTIVE DISORDER
  4. NEURONTIN [Concomitant]
     Indication: ANXIETY
  5. CYMBALTA [Concomitant]
     Indication: DEPRESSION

REACTIONS (1)
  - SCHIZOPHRENIA [None]
